FAERS Safety Report 7064914-9 (Version None)
Quarter: 2010Q4

REPORT INFORMATION
  Report Type: 
  Country: None (occurrence: None)
  Receive Date: 20101027
  Receipt Date: 19921216
  Transmission Date: 20110411
  Serious: Yes (Death, Life-Threatening, Hospitalization)
  Sender: FDA-Public Use
  Company Number: US-ROCHE-920202049001

PATIENT
  Age: 52 Year
  Sex: Male

DRUGS (1)
  1. INTERFERON ALFA [Suspect]
     Indication: MULTIPLE MYELOMA
     Route: 065
     Dates: end: 19921210

REACTIONS (2)
  - CARDIAC ARREST [None]
  - COAGULOPATHY [None]
